FAERS Safety Report 22193954 (Version 2)
Quarter: 2023Q2

REPORT INFORMATION
  Report Type: Spontaneous
  Country: US (occurrence: US)
  Receive Date: 20230411
  Receipt Date: 20230610
  Transmission Date: 20230722
  Serious: Yes (Hospitalization)
  Sender: FDA-Public Use
  Company Number: US-ALXN-A202304515

PATIENT
  Sex: Female

DRUGS (1)
  1. ULTOMIRIS [Suspect]
     Active Substance: RAVULIZUMAB-CWVZ
     Indication: Myasthenia gravis
     Dosage: 3300 MG, Q8W
     Route: 042
     Dates: start: 20221216

REACTIONS (3)
  - Spinal column injury [Unknown]
  - Fall [Unknown]
  - Product dose omission issue [Unknown]
